FAERS Safety Report 11730918 (Version 1)
Quarter: 2015Q4

REPORT INFORMATION
  Report Type: Spontaneous
  Country: US (occurrence: US)
  Receive Date: 20151110
  Receipt Date: 20151110
  Transmission Date: 20160304
  Serious: No
  Sender: FDA-Public Use
  Company Number: US-ELI_LILLY_AND_COMPANY-US201111009027

PATIENT
  Sex: Female

DRUGS (3)
  1. FORTEO [Suspect]
     Active Substance: TERIPARATIDE
     Indication: OSTEOPOROSIS
     Dosage: 20 UG, QD
     Route: 065
     Dates: start: 201111
  2. FORTEO [Suspect]
     Active Substance: TERIPARATIDE
     Dosage: 20 UG, QD
     Route: 065
     Dates: end: 201202
  3. ANALGESICS [Concomitant]
     Active Substance: UNSPECIFIED INGREDIENT
     Indication: BACK PAIN
     Dosage: UNK, TID

REACTIONS (11)
  - Hernia [Unknown]
  - Feeling abnormal [Unknown]
  - Back disorder [Unknown]
  - Multiple fractures [Unknown]
  - Weight decreased [Unknown]
  - Nausea [Unknown]
  - Fall [Unknown]
  - Eating disorder [Unknown]
  - Gastric disorder [Unknown]
  - Back pain [Unknown]
  - Constipation [Unknown]
